FAERS Safety Report 17816412 (Version 1)
Quarter: 2020Q2

REPORT INFORMATION
  Report Type: Spontaneous
  Country: US (occurrence: US)
  Receive Date: 20200522
  Receipt Date: 20200522
  Transmission Date: 20200714
  Serious: No
  Sender: FDA-Public Use
  Company Number: US-PFIZER INC-2020146413

PATIENT
  Sex: Male

DRUGS (2)
  1. TESTOSTERONE CIPIONATE [Suspect]
     Active Substance: TESTOSTERONE
     Dosage: 1 ML, UNK (ONCE EVERY TWO WEEKS)
     Route: 030
  2. TESTOSTERONE CIPIONATE [Suspect]
     Active Substance: TESTOSTERONE
     Dosage: 0.5 ML, WEEKLY
     Route: 030

REACTIONS (5)
  - Therapeutic product effect incomplete [Unknown]
  - Appetite disorder [Unknown]
  - Anger [Unknown]
  - Insomnia [Unknown]
  - Terminal insomnia [Unknown]
